FAERS Safety Report 25842618 (Version 1)
Quarter: 2025Q3

REPORT INFORMATION
  Report Type: Spontaneous
  Country: EU (occurrence: EU)
  Receive Date: 20250924
  Receipt Date: 20250924
  Transmission Date: 20251021
  Serious: Yes (Other)
  Sender: MYLAN
  Company Number: EU-BoehringerIngelheim-2025-BI-095280

PATIENT
  Age: 90 Year

DRUGS (1)
  1. DABIGATRAN [Suspect]
     Active Substance: DABIGATRAN
     Indication: Atrial fibrillation
     Dosage: 110 MILLIGRAM, BID (LAST TAKEN DOSE: 10-SEP-2025 AT 08.00 PM.)
     Dates: end: 20250910

REACTIONS (2)
  - Subdural haematoma [Unknown]
  - Apraxia [Unknown]
